FAERS Safety Report 15237686 (Version 4)
Quarter: 2020Q3

REPORT INFORMATION
  Report Type: Report from Study
  Country: US (occurrence: US)
  Receive Date: 20180803
  Receipt Date: 20180830
  Transmission Date: 20201104
  Serious: Yes (Other)
  Sender: FDA-Public Use
  Company Number: US-JNJFOC-20180630038

PATIENT
  Age: 69 Year
  Sex: Male
  Weight: 100.2 kg

DRUGS (13)
  1. RIVAROXABAN [Suspect]
     Active Substance: RIVAROXABAN
     Indication: PERIPHERAL ARTERIAL OCCLUSIVE DISEASE
     Route: 048
     Dates: start: 20170602
  2. ACETYLSALICYLIC ACID [Suspect]
     Active Substance: ASPIRIN
     Indication: PERIPHERAL ARTERIAL OCCLUSIVE DISEASE
     Route: 048
     Dates: start: 20180602
  3. PLAVIX [Concomitant]
     Active Substance: CLOPIDOGREL BISULFATE
     Route: 065
     Dates: start: 20130821
  4. THROMBIN [Concomitant]
     Active Substance: THROMBIN
     Route: 065
  5. FERROUS SULFATE. [Concomitant]
     Active Substance: FERROUS SULFATE
     Route: 065
     Dates: start: 20170403
  6. ACETYLSALICYLIC ACID [Suspect]
     Active Substance: ASPIRIN
     Indication: PERIPHERAL REVASCULARISATION
     Route: 048
     Dates: start: 20180602
  7. RIVAROXABAN [Suspect]
     Active Substance: RIVAROXABAN
     Indication: THROMBOSIS PROPHYLAXIS
     Route: 048
     Dates: start: 20170602
  8. LASIX [Concomitant]
     Active Substance: FUROSEMIDE
     Route: 065
     Dates: start: 20150826
  9. ENTRESTO [Concomitant]
     Active Substance: SACUBITRIL\VALSARTAN
     Route: 048
     Dates: start: 20160429
  10. RIVAROXABAN [Suspect]
     Active Substance: RIVAROXABAN
     Indication: PERIPHERAL REVASCULARISATION
     Route: 048
     Dates: start: 20170602
  11. ACETYLSALICYLIC ACID [Suspect]
     Active Substance: ASPIRIN
     Indication: THROMBOSIS PROPHYLAXIS
     Route: 048
     Dates: start: 20180602
  12. CARVEDILOL. [Concomitant]
     Active Substance: CARVEDILOL
     Route: 065
     Dates: start: 20150809
  13. CRESTOR [Concomitant]
     Active Substance: ROSUVASTATIN CALCIUM
     Indication: HYPERCHOLESTEROLAEMIA
     Route: 048
     Dates: start: 20131125

REACTIONS (2)
  - Peripheral arterial occlusive disease [Recovered/Resolved]
  - Peripheral arterial occlusive disease [Recovered/Resolved]

NARRATIVE: CASE EVENT DATE: 20180117
